FAERS Safety Report 4694110-1 (Version None)
Quarter: 2005Q2

REPORT INFORMATION
  Report Type: 
  Country: None (occurrence: None)
  Receive Date: 20050614
  Receipt Date: 20050405
  Transmission Date: 20051028
  Serious: No
  Sender: FDA-Public Use
  Company Number: USA050290537

PATIENT
  Age: 54 Year
  Sex: Male

DRUGS (5)
  1. CIALIS [Suspect]
     Indication: ERECTILE DYSFUNCTION
     Dosage: 20 MG
     Dates: start: 20050101
  2. ZOCOR (SIMVASTATIN RATIOPHARM) [Concomitant]
  3. GLUCOPHAGE [Concomitant]
  4. RANITIDINE [Concomitant]
  5. UNSPECIFIED BLOOD PRESSURE MEDICATION [Concomitant]

REACTIONS (3)
  - DRUG INEFFECTIVE [None]
  - EYE PAIN [None]
  - OCULAR HYPERAEMIA [None]
